FAERS Safety Report 6494551-6 (Version None)
Quarter: 2009Q4

REPORT INFORMATION
  Report Type: 
  Country: None (occurrence: None)
  Receive Date: 20091214
  Receipt Date: 20090304
  Transmission Date: 20100525
  Serious: Yes (Other)
  Sender: FDA-Public Use
  Company Number: US-BRISTOL-MYERS SQUIBB COMPANY-14528624

PATIENT
  Age: 36 Year
  Sex: Female
  Weight: 51 kg

DRUGS (3)
  1. ABILIFY [Suspect]
     Indication: DEPRESSION
     Dosage: 1 DF = 10-20 MG
     Dates: start: 20080420
  2. ABILIFY [Suspect]
     Indication: ANXIETY
     Dosage: 1 DF = 10-20 MG
     Dates: start: 20080420
  3. TRAZODONE HCL [Concomitant]

REACTIONS (8)
  - AMNESIA [None]
  - CONVULSION [None]
  - MOTOR DYSFUNCTION [None]
  - RASH [None]
  - SWELLING FACE [None]
  - TRANSIENT ISCHAEMIC ATTACK [None]
  - TREMOR [None]
  - URTICARIA [None]
